FAERS Safety Report 8567619-8 (Version None)
Quarter: 2012Q3

REPORT INFORMATION
  Report Type: 
  Country: None (occurrence: None)
  Receive Date: 20120803
  Receipt Date: 20120727
  Transmission Date: 20120928
  Serious: Yes (Hospitalization)
  Sender: FDA-Public Use
  Company Number: US-ELI_LILLY_AND_COMPANY-US201105001677

PATIENT
  Sex: Female

DRUGS (6)
  1. FORTEO [Suspect]
     Indication: OSTEOPOROSIS
     Dosage: 20 UG, QD
     Dates: start: 20110101
  2. FOLIC ACID [Concomitant]
     Dosage: UNK
  3. PROLIA [Concomitant]
     Dosage: UNK
  4. DILANTIN [Concomitant]
     Dosage: UNK
  5. LEVOTHYROXINE SODIUM [Concomitant]
     Dosage: UNK
  6. FORTEO [Suspect]
     Dosage: 20 UG, QD

REACTIONS (5)
  - ABDOMINAL PAIN UPPER [None]
  - PARAESTHESIA [None]
  - INJECTION SITE PAIN [None]
  - BLOOD CALCIUM DECREASED [None]
  - FEELING ABNORMAL [None]
